FAERS Safety Report 8069585-0 (Version None)
Quarter: 2012Q1

REPORT INFORMATION
  Report Type: 
  Country: None (occurrence: None)
  Receive Date: 20120125
  Receipt Date: 20120119
  Transmission Date: 20120608
  Serious: Yes (Death, Hospitalization)
  Sender: FDA-Public Use
  Company Number: PL-PFIZER INC-2012016742

PATIENT
  Age: 49 Year
  Sex: Male

DRUGS (2)
  1. CLADRIBINE [Suspect]
     Indication: HAIRY CELL LEUKAEMIA
     Dosage: 12 MG, DAILY (0.12 MG/KG IN 2-HOURS INFUSION) FOR 5 DAYS
     Route: 042
     Dates: start: 20100201
  2. NEUPOGEN [Concomitant]
     Indication: PROPHYLAXIS
     Dosage: 0.3 MG, FOR 5 DAYS
     Route: 058
     Dates: start: 20100201

REACTIONS (2)
  - BONE MARROW FAILURE [None]
  - ASPERGILLOSIS [None]
